FAERS Safety Report 9664424 (Version 1)
Quarter: 2013Q4

REPORT INFORMATION
  Report Type: Spontaneous
  Country: AU (occurrence: AU)
  Receive Date: 20131101
  Receipt Date: 20131101
  Transmission Date: 20140711
  Serious: Yes (Other)
  Sender: FDA-Public Use
  Company Number: AU-PFIZER INC-2013307842

PATIENT
  Sex: 0

DRUGS (1)
  1. ZARONTIN [Suspect]

REACTIONS (2)
  - Convulsion [Unknown]
  - Product physical issue [Unknown]
